FAERS Safety Report 8698372 (Version 2)
Quarter: 2012Q4

REPORT INFORMATION
  Report Type: 
  Country: AU (occurrence: AU)
  Receive Date: 20120802
  Receipt Date: 20120830
  Transmission Date: 20130627
  Serious: Yes (Other)
  Sender: FDA-Public Use
  Company Number: AU-JNJFOC-20120712706

PATIENT
  Sex: Female

DRUGS (4)
  1. DOXORUBICIN HYDROCHLORIDE (CAELYX) [Suspect]
     Indication: OVARIAN CANCER RECURRENT
     Dosage: on day 1
     Route: 042
  2. CARBOPLATIN [Suspect]
     Indication: OVARIAN CANCER RECURRENT
     Dosage: in CP patients on day 1 at 3 week intervals
     Route: 042
  3. CARBOPLATIN [Suspect]
     Indication: OVARIAN CANCER RECURRENT
     Dosage: in CPLD patients on day 1 at 4 week intervals
     Route: 042
  4. G-CSF [Concomitant]
     Indication: PROPHYLAXIS
     Dosage: on day 1
     Route: 065

REACTIONS (2)
  - Peripheral sensory neuropathy [Unknown]
  - Leukopenia [Unknown]
